FAERS Safety Report 8346560-X (Version None)
Quarter: 2012Q2

REPORT INFORMATION
  Report Type: 
  Country: None (occurrence: None)
  Receive Date: 20120508
  Receipt Date: 20120508
  Transmission Date: 20120825
  Serious: No
  Sender: FDA-Public Use
  Company Number: None

PATIENT
  Age: 10 Year
  Sex: Male

DRUGS (3)
  1. CONCERTA [Concomitant]
  2. RITALIN [Concomitant]
  3. KAPVAY [Suspect]

REACTIONS (4)
  - HEADACHE [None]
  - FALL [None]
  - SOMNOLENCE [None]
  - SYNCOPE [None]
